FAERS Safety Report 5355847-4 (Version None)
Quarter: 2007Q2

REPORT INFORMATION
  Report Type: 
  Country: None (occurrence: None)
  Receive Date: 20070611
  Receipt Date: 20070611
  Transmission Date: 20071010
  Serious: No
  Sender: FDA-Public Use
  Company Number: None

PATIENT
  Sex: Female
  Weight: 59 kg

DRUGS (7)
  1. CISPLATIN [Suspect]
     Dosage: 328 MG
     Dates: end: 20070529
  2. ERBITUX [Suspect]
  3. BENADRYL [Concomitant]
  4. HYDROCORTISONE [Concomitant]
  5. REGLAN [Concomitant]
  6. TYLENOL W/ CODEINE [Concomitant]
  7. ZOFRAN [Concomitant]

REACTIONS (2)
  - HYPOKALAEMIA [None]
  - LYMPHOPENIA [None]
